FAERS Safety Report 24326451 (Version 1)
Quarter: 2024Q3

REPORT INFORMATION
  Report Type: Report from Study
  Country: US (occurrence: US)
  Receive Date: 20240917
  Receipt Date: 20240917
  Transmission Date: 20241017
  Serious: Yes (Hospitalization)
  Sender: GILEAD
  Company Number: US-GILEAD-2024-0687734

PATIENT
  Sex: Female

DRUGS (3)
  1. AZTREONAM LYSINE [Suspect]
     Active Substance: AZTREONAM LYSINE
     Indication: Ill-defined disorder
     Dosage: 75 MG, TID ( ALTERNATING EVERY 28 DAYS)
     Route: 055
  2. AZTREONAM LYSINE [Suspect]
     Active Substance: AZTREONAM LYSINE
     Indication: Cystic fibrosis
  3. TOBI PODHALER [Suspect]
     Active Substance: TOBRAMYCIN
     Indication: Ill-defined disorder
     Dosage: UNK (28 MG CAP W/DEV)
     Route: 065

REACTIONS (1)
  - Respiratory tract infection [Unknown]
